FAERS Safety Report 5402660-5 (Version None)
Quarter: 2007Q3

REPORT INFORMATION
  Report Type: 
  Country: None (occurrence: None)
  Receive Date: 20070730
  Receipt Date: 20070717
  Transmission Date: 20080115
  Serious: Yes (Other)
  Sender: FDA-Public Use
  Company Number: 07H-163-0312897-00

PATIENT
  Age: 2 Day
  Sex: Female

DRUGS (17)
  1. DEXTROSE 70% [Suspect]
     Indication: PARENTERAL NUTRITION
  2. POTASSIUM ACETATE [Suspect]
     Indication: PARENTERAL NUTRITION
     Dosage: INTRAVENOUS
     Route: 042
  3. STERILE WATER FOR INJECTION (STERILE WATER) (STERILE WATER) [Suspect]
     Indication: PARENTERAL NUTRITION
     Dosage: INTRAVENOUS
     Route: 042
  4. AMINOSYN  PF [Suspect]
     Indication: PARENTERAL NUTRITION
     Dosage: INTRAVENOUS
     Route: 042
  5. CARNITINE (CARNITINE) [Suspect]
     Indication: PARENTERAL NUTRITION
     Dosage: INTRAVENOUS
     Route: 042
  6. SODIUM ACETATE [Suspect]
     Indication: PARENTERAL NUTRITION
     Dosage: INTRAVENOUS
     Route: 042
  7. POTASSIUM (POTASSIUM) [Suspect]
     Indication: PARENTERAL NUTRITION
     Dosage: INTRAVENOUS
     Route: 042
  8. CALCIUM GLUCONATE [Suspect]
     Indication: PARENTERAL NUTRITION
     Dosage: INTRAVENOUS
     Route: 042
  9. POTASSIUM CHLORIDE [Suspect]
     Indication: PARENTERAL NUTRITION
  10. PEDS MULTI VITAMIN [Suspect]
     Indication: PARENTERAL NUTRITION
     Dosage: INTRAVENOUS
     Route: 042
  11. PTE-4 [Suspect]
     Indication: PARENTERAL NUTRITION
  12. ZINC (ZINC) [Suspect]
     Indication: PARENTERAL NUTRITION
     Dosage: INTRAVENOUS
     Route: 042
  13. SELENIUM (SELENIUM) [Suspect]
     Indication: PARENTERAL NUTRITION
     Dosage: INTRAVENOUS
     Route: 042
  14. HEPARIN [Suspect]
     Indication: PARENTERAL NUTRITION
     Dosage: INTRAVENOUS
     Route: 042
  15. MAGNESIUM SULFATE [Suspect]
     Indication: PARENTERAL NUTRITION
     Dosage: INTRAVENOUS
     Route: 042
  16. PHOSPHORUS (PHOSPHORUS) [Suspect]
     Indication: PARENTERAL NUTRITION
     Dosage: INTRAVENOUS
     Route: 042
  17. CAFFEINE [Suspect]
     Indication: DRUG USE FOR UNKNOWN INDICATION

REACTIONS (3)
  - BLOOD GLUCOSE INCREASED [None]
  - BLOOD SODIUM DECREASED [None]
  - INCORRECT DOSE ADMINISTERED [None]
